FAERS Safety Report 8791943 (Version 2)
Quarter: 2012Q4

REPORT INFORMATION
  Report Type: 
  Country: US (occurrence: US)
  Receive Date: 20120918
  Receipt Date: 20121105
  Transmission Date: 20130627
  Serious: Yes (Other)
  Sender: FDA-Public Use
  Company Number: US-SANOFI-AVENTIS-2012SA065582

PATIENT
  Age: 66 Year
  Sex: Female

DRUGS (11)
  1. PLAVIX [Suspect]
     Indication: HEART ATTACK
     Route: 048
     Dates: start: 2006
  2. ASPIRIN [Suspect]
     Indication: CARDIAC DISORDER
     Route: 048
     Dates: start: 2010
  3. AFLIBERCEPT [Suspect]
     Indication: DIABETIC MACULAR EDEMA
     Dosage: daily dose is masked.
     Route: 031
     Dates: start: 20110811
  4. IBUPROFEN [Concomitant]
     Indication: ARTHRITIS
     Route: 048
     Dates: start: 2003
  5. PENTOXIFYLLINE [Concomitant]
     Indication: PERIPHERAL ARTERIAL DISEASE
     Route: 048
     Dates: start: 2005
  6. ATORVASTATIN CALCIUM [Concomitant]
     Indication: HYPERCHOLESTEROLEMIA
     Route: 048
     Dates: start: 2005
  7. ESOMEPRAZOLE [Concomitant]
     Indication: REFLUX GASTRITIS
     Dates: start: 2005
  8. DIOVAN HCT [Concomitant]
     Indication: HYPERTENSION
     Route: 048
     Dates: start: 2005
  9. METOPROLOL [Concomitant]
     Indication: HYPERTENSION
     Dates: start: 2010
  10. HUMALOG [Concomitant]
     Indication: DIABETES
     Dosage: 15 units/20 units
     Dates: start: 1995
  11. LANTUS [Concomitant]
     Indication: DIABETES
     Dosage: Dose:45 unit(s)
     Dates: start: 1995

REACTIONS (1)
  - Cerebral haemorrhage [Recovered/Resolved]
